FAERS Safety Report 17727947 (Version 3)
Quarter: 2020Q3

REPORT INFORMATION
  Report Type: Spontaneous
  Country: US (occurrence: US)
  Receive Date: 20200430
  Receipt Date: 20200709
  Transmission Date: 20201102
  Serious: No
  Sender: FDA-Public Use
  Company Number: US-ASTRAZENECA-2020SE56553

PATIENT
  Sex: Male
  Weight: 158.8 kg

DRUGS (5)
  1. BYDUREON BCISE [Suspect]
     Active Substance: EXENATIDE
     Indication: TYPE 2 DIABETES MELLITUS
     Route: 058
  2. INVOKANA [Concomitant]
     Active Substance: CANAGLIFLOZIN
     Indication: DIABETES MELLITUS
     Route: 048
  3. CORTISONE [Concomitant]
     Active Substance: CORTISONE
     Indication: MUSCLE SPASMS
     Dosage: UNKNOWN
     Route: 065
  4. OCTAGAM IMMUNE GLOBULIN (HUMAN) [Concomitant]
     Active Substance: HUMAN IMMUNOGLOBULIN G
     Indication: CHRONIC INFLAMMATORY DEMYELINATING POLYRADICULONEUROPATHY
     Dosage: 2 G PER KG THEN 1 G PER KG MAINTENANCE DOSE EVERY 2 TO 4 WEEKS
     Route: 042
  5. ACTOS [Concomitant]
     Active Substance: PIOGLITAZONE HYDROCHLORIDE
     Indication: DIABETES MELLITUS
     Route: 048

REACTIONS (7)
  - Device delivery system issue [Unknown]
  - Product dose omission issue [Recovered/Resolved]
  - Device issue [Unknown]
  - Heart rate decreased [Recovered/Resolved]
  - Illness [Unknown]
  - Blood glucose increased [Unknown]
  - Nausea [Unknown]
